FAERS Safety Report 21038517 (Version 1)
Quarter: 2022Q3

REPORT INFORMATION
  Report Type: Spontaneous
  Country: US (occurrence: US)
  Receive Date: 20220704
  Receipt Date: 20220704
  Transmission Date: 20221027
  Serious: Yes (Other)
  Sender: FDA-Public Use
  Company Number: US-SA-SAC20220630000518

PATIENT
  Sex: Female

DRUGS (5)
  1. FERRLECIT [Suspect]
     Active Substance: SODIUM FERRIC GLUCONATE COMPLEX
     Dosage: UNK
  2. SOLU-MEDROL [Concomitant]
     Active Substance: METHYLPREDNISOLONE SODIUM SUCCINATE
     Dosage: UNK
  3. PEPCID [Concomitant]
     Active Substance: FAMOTIDINE
     Dosage: UNK
  4. BENADRYL [Concomitant]
     Active Substance: DIPHENHYDRAMINE HYDROCHLORIDE
     Dosage: UNK
  5. VENOFER [Concomitant]
     Active Substance: IRON SUCROSE
     Dosage: UNK

REACTIONS (5)
  - Angioedema [Not Recovered/Not Resolved]
  - Chest discomfort [Not Recovered/Not Resolved]
  - Hyperventilation [Not Recovered/Not Resolved]
  - Pleuritic pain [Not Recovered/Not Resolved]
  - Dyspnoea [Not Recovered/Not Resolved]
